FAERS Safety Report 10084717 (Version 1)
Quarter: 2014Q2

REPORT INFORMATION
  Report Type: Spontaneous
  Country: FR (occurrence: FR)
  Receive Date: 20140417
  Receipt Date: 20140417
  Transmission Date: 20141212
  Serious: Yes (Other)
  Sender: FDA-Public Use
  Company Number: FR-VIIV HEALTHCARE LIMITED-B0983235A

PATIENT
  Age: 49 Year
  Sex: Female

DRUGS (2)
  1. COMBIVIR [Suspect]
     Indication: HIV INFECTION
     Route: 048
     Dates: end: 201210
  2. VIREAD [Suspect]
     Indication: HIV INFECTION
     Route: 065
     Dates: end: 201210

REACTIONS (8)
  - Fanconi syndrome acquired [Recovering/Resolving]
  - Osteomalacia [Recovering/Resolving]
  - Hypophosphataemia [Recovered/Resolved]
  - Glycosuria [Recovered/Resolved]
  - Proteinuria [Unknown]
  - Renal failure [Unknown]
  - Acidosis hyperchloraemic [Recovered/Resolved]
  - Hypouricaemia [Recovered/Resolved]
